FAERS Safety Report 13619199 (Version 1)
Quarter: 2017Q2

REPORT INFORMATION
  Report Type: Spontaneous
  Country: US (occurrence: US)
  Receive Date: 20170606
  Receipt Date: 20170606
  Transmission Date: 20170830
  Serious: No
  Sender: FDA-Public Use
  Company Number: None

PATIENT
  Age: 34 Year
  Sex: Female
  Weight: 66.15 kg

DRUGS (3)
  1. ESCITALOPRAM [Suspect]
     Active Substance: ESCITALOPRAM OXALATE
     Indication: ANXIETY
     Dosage: ?          QUANTITY:90 TABLET(S);?
     Route: 048
     Dates: start: 20160215, end: 20170130
  2. FISH OIL [Concomitant]
     Active Substance: FISH OIL
  3. PRENATAL VITAMINS [Concomitant]
     Active Substance: VITAMINS

REACTIONS (11)
  - Obsessive-compulsive disorder [None]
  - Palpitations [None]
  - Depression [None]
  - Immune system disorder [None]
  - Headache [None]
  - Panic reaction [None]
  - Social anxiety disorder [None]
  - Feeling abnormal [None]
  - Condition aggravated [None]
  - Fatigue [None]
  - Dyspnoea [None]
